FAERS Safety Report 14980585 (Version 5)
Quarter: 2018Q3

REPORT INFORMATION
  Report Type: Spontaneous
  Country: CZ (occurrence: CZ)
  Receive Date: 20180606
  Receipt Date: 20180924
  Transmission Date: 20181010
  Serious: Yes (Death, Life-Threatening, Hospitalization, Disabling, Other)
  Sender: FDA-Public Use
  Company Number: CZ-MYLANLABS-2018M1037496

PATIENT
  Age: 66 Year
  Sex: Male
  Weight: 102 kg

DRUGS (15)
  1. 5?FLUOROURACIL                     /00098801/ [Suspect]
     Active Substance: FLUOROURACIL
     Indication: METASTASES TO LIVER
  2. 5?FLUOROURACIL                     /00098801/ [Suspect]
     Active Substance: FLUOROURACIL
     Dosage: 2 G, UNK,2 G (5FLUOROURACIL 800 MG + F1/1 500 ML 5FLUOROURACIL 1200 MG + F1/1 1000 ML ; IN TOTAL)
     Route: 017
     Dates: start: 20180216, end: 20180216
  3. VECTIBIX [Suspect]
     Active Substance: PANITUMUMAB
     Indication: METASTASES TO LIVER
  4. VECTIBIX [Suspect]
     Active Substance: PANITUMUMAB
     Indication: METASTASES TO LYMPH NODES
  5. OXALIPLATIN. [Suspect]
     Active Substance: OXALIPLATIN
     Indication: COLON CANCER
     Dosage: OXALIPLATIN 170 MG + G5% 500 ML
     Route: 017
     Dates: start: 20180216, end: 20180216
  6. 5?FLUOROURACIL                     /00098801/ [Suspect]
     Active Substance: FLUOROURACIL
     Indication: COLON CANCER
     Dosage: 2 G, UNK,2 G (5FLUOROURACIL 800 MG + F1/1 500 ML 5FLUOROURACIL 1200 MG + F1/1 1000 ML ; IN TOTAL)
     Route: 050
  7. OXALIPLATIN. [Suspect]
     Active Substance: OXALIPLATIN
     Indication: METASTASES TO LIVER
  8. OXALIPLATIN. [Suspect]
     Active Substance: OXALIPLATIN
     Indication: METASTASES TO LYMPH NODES
  9. OXALIPLATIN. [Suspect]
     Active Substance: OXALIPLATIN
     Indication: COLON CANCER
     Dosage: 170 MG, TOTAL
     Route: 050
  10. VECTIBIX [Suspect]
     Active Substance: PANITUMUMAB
     Indication: COLON CANCER
     Dosage: VECTIBIX 100 MG + F1/1 100 ML VECTIBIX 500 MG + F1/1 250 ML
     Route: 017
     Dates: start: 20180216, end: 20180216
  11. VECTIBIX [Suspect]
     Active Substance: PANITUMUMAB
     Indication: METASTASES TO LIVER
     Dosage: 600 MG (VECTIBIX 100 MG + F1/1 100 ML VECTIBIX 500 MG + F1/1 250 ML ; IN TOTAL)
     Route: 017
     Dates: start: 20180216, end: 20180216
  12. VECTIBIX [Suspect]
     Active Substance: PANITUMUMAB
     Indication: METASTASES TO LYMPH NODES
  13. 5?FLUOROURACIL                     /00098801/ [Suspect]
     Active Substance: FLUOROURACIL
     Indication: COLON CANCER
     Dosage: 5?FLUOROURACIL 800 MG + F1/1 500 ML 5?FLUOROURACIL 1200 MG + F1/1 1000 ML
     Route: 017
     Dates: start: 20180216, end: 20180216
  14. 5?FLUOROURACIL                     /00098801/ [Suspect]
     Active Substance: FLUOROURACIL
     Indication: METASTASES TO LYMPH NODES
  15. VECTIBIX [Suspect]
     Active Substance: PANITUMUMAB
     Indication: COLON CANCER
     Dosage: 600 MG, UNK,600 MG (VECTIBIX 100MG + F1/1 100 ML VECTIBIX 500 MG + F1/1250 ML ; IN TOTAL)
     Route: 050

REACTIONS (2)
  - Urinary tract infection [Fatal]
  - Sepsis [Fatal]

NARRATIVE: CASE EVENT DATE: 20180220
